FAERS Safety Report 7465388-6 (Version None)
Quarter: 2011Q2

REPORT INFORMATION
  Report Type: 
  Country: None (occurrence: None)
  Receive Date: 20110509
  Receipt Date: 20110506
  Transmission Date: 20111010
  Serious: Yes (Hospitalization, Other)
  Sender: FDA-Public Use
  Company Number: CA-ROCHE-643465

PATIENT
  Sex: Female
  Weight: 59 kg

DRUGS (13)
  1. ROSUVASTATIN CALCIUM [Concomitant]
     Dosage: TDD REPORTED: 10.
     Route: 048
     Dates: end: 20090306
  2. ASPIRIN [Concomitant]
     Dosage: DOSE REPORTED: 81.
     Route: 048
     Dates: end: 20090306
  3. ESOMEPRAZOLE [Concomitant]
     Dosage: TDD REPORTED: 40.
     Route: 048
     Dates: end: 20090306
  4. HYDROCHLOROTHIAZIDE [Concomitant]
     Dosage: DOSE REPORTED: 50.
     Route: 048
     Dates: start: 19980101, end: 20090306
  5. FERROUS FUMARATE [Concomitant]
     Dosage: DOSE REPORTED: 300.
     Route: 048
     Dates: start: 20081118, end: 20090306
  6. CARBOPLATIN [Suspect]
     Dosage: LAST DOSE: 29 NOVEMBER 2007.
     Route: 042
     Dates: start: 20070814
  7. PREDNISONE [Concomitant]
     Dosage: DOSE REPORTED: 50.
     Route: 048
     Dates: end: 20090306
  8. BARIUM [Concomitant]
     Dosage: DRUG NAME REPORTED: BARIUM ENEMA. TDD: NA.
     Route: 050
     Dates: start: 20081106, end: 20081106
  9. DARBEPOETIN ALFA [Concomitant]
     Route: 048
     Dates: start: 20070927
  10. PERCOCET [Concomitant]
     Route: 048
     Dates: start: 20071018
  11. PACLITAXEL [Suspect]
     Dosage: FORM - INFUSION PER PROTOCOL. LAST DOSE ON: 29 NOVEMBER 2007.
     Route: 042
     Dates: start: 20070814
  12. IBUPROFEN [Concomitant]
     Route: 048
     Dates: start: 20071018
  13. AVASTIN [Suspect]
     Dosage: FREQUENCY: 3 WEEKLY PER PROTOCOL. LAST DOSE: 21 AUGUST 2008.
     Route: 042
     Dates: start: 20070814

REACTIONS (3)
  - GASTROINTESTINAL HAEMORRHAGE [None]
  - MYELODYSPLASTIC SYNDROME [None]
  - POST PROCEDURAL HAEMORRHAGE [None]
